FAERS Safety Report 18597181 (Version 1)
Quarter: 2020Q4

REPORT INFORMATION
  Report Type: Spontaneous
  Country: SE (occurrence: SE)
  Receive Date: 20201209
  Receipt Date: 20201209
  Transmission Date: 20210114
  Serious: Yes (Life-Threatening)
  Sender: FDA-Public Use
  Company Number: SE-TEVA-2020-SE-1855693

PATIENT
  Age: 68 Year
  Sex: Female

DRUGS (3)
  1. FOLINIC ACID [Suspect]
     Active Substance: LEUCOVORIN
     Indication: COLORECTAL CARCINOMA STAGE 0
     Dates: start: 20200908, end: 20200910
  2. FLUOROURACIL. [Suspect]
     Active Substance: FLUOROURACIL
     Indication: COLORECTAL CARCINOMA STAGE 0
     Dates: start: 20200908, end: 20200910
  3. OXALIPLATIN. [Suspect]
     Active Substance: OXALIPLATIN
     Indication: COLORECTAL CARCINOMA STAGE 0
     Dates: start: 20200908, end: 20200910

REACTIONS (4)
  - Left ventricular failure [Not Recovered/Not Resolved]
  - Myocarditis [Not Recovered/Not Resolved]
  - Arteriospasm coronary [Not Recovered/Not Resolved]
  - Myocardial ischaemia [Not Recovered/Not Resolved]

NARRATIVE: CASE EVENT DATE: 20201007
